FAERS Safety Report 13495366 (Version 1)
Quarter: 2017Q2

REPORT INFORMATION
  Report Type: Spontaneous
  Country: US (occurrence: US)
  Receive Date: 20170427
  Receipt Date: 20170427
  Transmission Date: 20170830
  Serious: Yes (Life-Threatening, Hospitalization)
  Sender: FDA-Public Use
  Company Number: None

PATIENT
  Age: 69 Year
  Sex: Male
  Weight: 64.14 kg

DRUGS (1)
  1. FERRIC NA GLUCONATE [Suspect]
     Active Substance: SODIUM FERRIC GLUCONATE COMPLEX
     Indication: IRON DEFICIENCY ANAEMIA
     Route: 042
     Dates: start: 20170331, end: 20170331

REACTIONS (12)
  - Anaphylactic shock [None]
  - Fall [None]
  - Dizziness [None]
  - Anal incontinence [None]
  - Tremor [None]
  - Refusal of treatment by patient [None]
  - Vomiting [None]
  - Hypotension [None]
  - Pallor [None]
  - Hyperhidrosis [None]
  - Diarrhoea [None]
  - Nausea [None]

NARRATIVE: CASE EVENT DATE: 20170331
